FAERS Safety Report 20475468 (Version 1)
Quarter: 2022Q1

REPORT INFORMATION
  Report Type: Spontaneous
  Country: US (occurrence: US)
  Receive Date: 20220215
  Receipt Date: 20220215
  Transmission Date: 20220423
  Serious: No
  Sender: FDA-Public Use
  Company Number: US-PFIZER INC-202200197736

PATIENT
  Age: 62 Year
  Sex: Female

DRUGS (1)
  1. IBRANCE [Suspect]
     Active Substance: PALBOCICLIB
     Dosage: 100 MG, CYCLIC (1 CAPSULE DAILY ON DAYS 1 THROUGH 21)
     Dates: start: 20210811

REACTIONS (6)
  - White blood cell count decreased [Unknown]
  - COVID-19 [Unknown]
  - Pyrexia [Unknown]
  - Diarrhoea [Unknown]
  - Constipation [Unknown]
  - Product dose omission in error [Unknown]

NARRATIVE: CASE EVENT DATE: 20220102
